FAERS Safety Report 10751325 (Version 2)
Quarter: 2015Q2

REPORT INFORMATION
  Report Type: Spontaneous
  Country: US (occurrence: US)
  Receive Date: 20150130
  Receipt Date: 20150612
  Transmission Date: 20150821
  Serious: Yes (Death, Hospitalization, Other)
  Sender: FDA-Public Use
  Company Number: US-MERCK-1501USA011745

PATIENT
  Sex: Male
  Weight: 61.3 kg

DRUGS (2)
  1. JANUVIA [Suspect]
     Active Substance: SITAGLIPTIN PHOSPHATE
     Indication: TYPE 2 DIABETES MELLITUS
     Dosage: 100 MG, QD
     Route: 048
     Dates: start: 2012, end: 2013
  2. METFORMIN [Concomitant]
     Active Substance: METFORMIN HYDROCHLORIDE
     Indication: TYPE 2 DIABETES MELLITUS
     Dosage: UNK
     Dates: start: 2009, end: 20130816

REACTIONS (27)
  - Bacterial infection [Unknown]
  - Anxiety [Unknown]
  - Sleep apnoea syndrome [Unknown]
  - Inguinal hernia [Unknown]
  - Knee arthroplasty [Unknown]
  - Haemorrhoid operation [Unknown]
  - Explorative laparotomy [Unknown]
  - Pancreatic insufficiency [Unknown]
  - Depression [Unknown]
  - Inflammation [Unknown]
  - Aortic aneurysm [Unknown]
  - Catheter placement [Unknown]
  - Bladder outlet obstruction [Unknown]
  - Adenocarcinoma pancreas [Unknown]
  - Sedation [Unknown]
  - Nephrolithiasis [Unknown]
  - Metastases to abdominal wall [Unknown]
  - Gastrooesophageal reflux disease [Unknown]
  - Splenic vein thrombosis [Unknown]
  - Rales [Unknown]
  - Death [Fatal]
  - Cardiac murmur [Unknown]
  - Inguinal hernia repair [Unknown]
  - Metastatic neoplasm [Unknown]
  - Diverticulitis [Unknown]
  - Umbilical hernia [Unknown]
  - Benign prostatic hyperplasia [Unknown]

NARRATIVE: CASE EVENT DATE: 201210
